FAERS Safety Report 7469160-2 (Version None)
Quarter: 2011Q2

REPORT INFORMATION
  Report Type: 
  Country: None (occurrence: None)
  Receive Date: 20110510
  Receipt Date: 20110324
  Transmission Date: 20111010
  Serious: Yes (Other)
  Sender: FDA-Public Use
  Company Number: US-BAYER-201036682NA

PATIENT
  Age: 26 Year
  Sex: Female

DRUGS (7)
  1. EFFEXOR XR [Concomitant]
     Dosage: 75 MG, UNK
     Route: 048
  2. PROVENTIL-HFA [Concomitant]
     Dosage: UNK UNK, Q4HR
     Route: 055
  3. YASMIN [Suspect]
     Indication: PRODUCT USED FOR UNKNOWN INDICATION
     Dosage: UNK
     Route: 048
     Dates: start: 20040401, end: 20080101
  4. CLARITIN-D [Concomitant]
     Dosage: UNK
     Route: 048
     Dates: end: 20080721
  5. SUPPLEMENTS [Concomitant]
  6. LOESTRIN 1.5/30 [Concomitant]
     Dosage: UNK
     Route: 048
  7. SINGULAIR [Concomitant]
     Dosage: 10 MG, UNK
     Route: 048
     Dates: start: 20080721

REACTIONS (6)
  - CHOLELITHIASIS [None]
  - GALLBLADDER DISORDER [None]
  - NAUSEA [None]
  - ABDOMINAL PAIN UPPER [None]
  - DIZZINESS [None]
  - CHOLECYSTITIS [None]
